FAERS Safety Report 8900616 (Version 1)
Quarter: 2012Q4

REPORT INFORMATION
  Report Type: 
  Country: CA (occurrence: CA)
  Receive Date: 20121109
  Receipt Date: 20121109
  Transmission Date: 20130627
  Serious: Yes (Death, Hospitalization, Other)
  Sender: FDA-Public Use
  Company Number: PHMT2006CA01031

PATIENT
  Sex: Male

DRUGS (9)
  1. SANDOSTATIN LAR [Suspect]
     Indication: PANCREATIC CARCINOMA METASTATIC
     Dosage: 20 mg, QMO
     Route: 030
     Dates: start: 20050624, end: 20060811
  2. ALLOPURINOL [Concomitant]
  3. APO-FUROSEMIDE [Concomitant]
  4. ASA [Concomitant]
  5. COLCHICINE [Concomitant]
  6. DOMPERIDONE [Concomitant]
  7. MACROBID [Concomitant]
     Indication: URINARY TRACT INFECTION
  8. PANTOLOC ^SOLVAY^ [Concomitant]
  9. VENLAFAXINE [Concomitant]

REACTIONS (17)
  - Death [Fatal]
  - Blood pressure increased [Unknown]
  - Abdominal pain [Not Recovered/Not Resolved]
  - Headache [Recovered/Resolved]
  - Weight decreased [Unknown]
  - Abdominal rigidity [Unknown]
  - Groin pain [Unknown]
  - Fatigue [Unknown]
  - Diarrhoea [Unknown]
  - Nausea [Unknown]
  - Dizziness [Unknown]
  - Hyperglycaemia [Unknown]
  - Constipation [Unknown]
  - Decreased appetite [Unknown]
  - Abdominal distension [Unknown]
  - Bradycardia [Unknown]
  - Flatulence [Unknown]
